FAERS Safety Report 17781098 (Version 7)
Quarter: 2021Q3

REPORT INFORMATION
  Report Type: Report from Study
  Country: None (occurrence: IL)
  Receive Date: 20200514
  Receipt Date: 20210901
  Transmission Date: 20211014
  Serious: Yes (Life-Threatening, Hospitalization, Other)
  Sender: FDA-Public Use
  Company Number: IL-ABBVIE-20K-082-3394394-00

PATIENT
  Age: 72 Year
  Sex: Male
  Weight: 99 kg

DRUGS (15)
  1. VENCLEXTA [Suspect]
     Active Substance: VENETOCLAX
     Indication: CHRONIC LYMPHOCYTIC LEUKAEMIA
     Dosage: RAMP UP
     Route: 048
     Dates: start: 20200427, end: 20200427
  2. VENCLEXTA [Suspect]
     Active Substance: VENETOCLAX
     Dosage: RAMP UP
     Route: 048
     Dates: start: 20200428, end: 20200508
  3. AZACITIDINE. [Suspect]
     Active Substance: AZACITIDINE
     Dosage: CYCLE 3
     Route: 042
     Dates: start: 20200712, end: 20200718
  4. VENCLEXTA [Suspect]
     Active Substance: VENETOCLAX
     Route: 048
     Dates: start: 202009
  5. OMEPRADEX [Concomitant]
     Active Substance: OMEPRAZOLE
     Indication: PREMEDICATION
     Dates: start: 20200426
  6. VENCLEXTA [Suspect]
     Active Substance: VENETOCLAX
     Indication: ACUTE MYELOID LEUKAEMIA
     Dosage: RAMP UP
     Route: 048
     Dates: start: 20200426, end: 20200426
  7. PARACETAMOL [Concomitant]
     Active Substance: ACETAMINOPHEN
     Indication: PREMEDICATION
     Dates: start: 20200426
  8. AZACITIDINE. [Suspect]
     Active Substance: AZACITIDINE
     Dosage: CYCLE 2
     Route: 042
     Dates: start: 20200616, end: 20200622
  9. VENCLEXTA [Suspect]
     Active Substance: VENETOCLAX
     Route: 048
     Dates: start: 20201007, end: 20210629
  10. AZACITIDINE. [Suspect]
     Active Substance: AZACITIDINE
     Indication: ACUTE MYELOID LEUKAEMIA
     Dosage: CYCLE 1
     Route: 058
     Dates: start: 20200426, end: 20200503
  11. LORATADINE. [Concomitant]
     Active Substance: LORATADINE
     Indication: PREMEDICATION
     Dates: start: 20200426
  12. ZOFRAN [Concomitant]
     Active Substance: ONDANSETRON HYDROCHLORIDE
     Indication: PREMEDICATION
     Dates: start: 20200426
  13. LAMOTRIGINE. [Concomitant]
     Active Substance: LAMOTRIGINE
     Indication: EPILEPSY
     Dates: start: 202012
  14. ALLORIL [Concomitant]
     Active Substance: ALLOPURINOL
     Indication: PROPHYLAXIS
     Dates: start: 20200427
  15. LEVETIRACETAM. [Concomitant]
     Active Substance: LEVETIRACETAM
     Indication: EPILEPSY
     Dates: start: 202005, end: 202012

REACTIONS (5)
  - Febrile neutropenia [Not Recovered/Not Resolved]
  - Pyrexia [Recovered/Resolved]
  - Dysarthria [Recovered/Resolved]
  - Seizure [Recovered/Resolved]
  - Subdural haematoma [Recovered/Resolved]

NARRATIVE: CASE EVENT DATE: 20200504
